FAERS Safety Report 5013641-8 (Version None)
Quarter: 2006Q2

REPORT INFORMATION
  Report Type: 
  Country: None (occurrence: None)
  Receive Date: 20060530
  Receipt Date: 20060516
  Transmission Date: 20061013
  Serious: Yes (Hospitalization)
  Sender: FDA-Public Use
  Company Number: FR-GLAXOSMITHKLINE-B0424551A

PATIENT
  Age: 79 Year
  Sex: Female

DRUGS (8)
  1. LAMICTAL [Suspect]
     Indication: EPILEPSY
     Route: 048
     Dates: start: 20060110, end: 20060228
  2. TRIFLUCAN [Suspect]
     Dosage: 150MG PER DAY
     Route: 048
     Dates: start: 20060220, end: 20060227
  3. RODOGYL [Concomitant]
     Indication: LOCAL SWELLING
     Route: 048
     Dates: start: 20060201, end: 20060221
  4. COVERSYL [Concomitant]
     Route: 065
  5. PANTOPRAZOLE SODIUM [Concomitant]
     Route: 065
  6. VASTEN [Concomitant]
     Route: 065
  7. FLUDEX [Concomitant]
     Route: 065
  8. URBANYL [Concomitant]
     Indication: EPILEPSY
     Route: 048
     Dates: start: 20060110

REACTIONS (6)
  - EOSINOPHILIA [None]
  - LYMPHADENOPATHY [None]
  - MOUTH ULCERATION [None]
  - PURPURA [None]
  - RASH MACULO-PAPULAR [None]
  - TOXIC SKIN ERUPTION [None]
